FAERS Safety Report 12087884 (Version 1)
Quarter: 2016Q1

REPORT INFORMATION
  Report Type: Spontaneous
  Country: US (occurrence: US)
  Receive Date: 20160217
  Receipt Date: 20160217
  Transmission Date: 20160526
  Serious: No
  Sender: FDA-Public Use
  Company Number: US-ALLERGAN-1519391US

PATIENT
  Age: 74 Year
  Sex: Female
  Weight: 58.5 kg

DRUGS (3)
  1. RESTASIS [Suspect]
     Active Substance: CYCLOSPORINE
     Indication: CORNEAL DISORDER
     Dosage: 2 GTT, BID
     Route: 047
     Dates: start: 20150831, end: 20150922
  2. LATANOPROST. [Concomitant]
     Active Substance: LATANOPROST
     Indication: GLAUCOMA
  3. NIFEDICAL XL [Concomitant]
     Active Substance: NIFEDIPINE
     Indication: BLOOD PRESSURE MEASUREMENT

REACTIONS (6)
  - Urticaria [Recovered/Resolved]
  - Rash erythematous [Not Recovered/Not Resolved]
  - Off label use [Unknown]
  - Local swelling [Not Recovered/Not Resolved]
  - Discomfort [Not Recovered/Not Resolved]
  - Swelling face [Not Recovered/Not Resolved]

NARRATIVE: CASE EVENT DATE: 20150912
